FAERS Safety Report 8482767-9 (Version None)
Quarter: 2012Q3

REPORT INFORMATION
  Report Type: 
  Country: None (occurrence: None)
  Receive Date: 20120702
  Receipt Date: 20120628
  Transmission Date: 20120928
  Serious: Yes (Death)
  Sender: FDA-Public Use
  Company Number: AU-B.I. PHARMACEUTICALS,INC./RIDGEFIELD-2012-AU-01149AU

PATIENT
  Sex: Male
  Weight: 62 kg

DRUGS (5)
  1. FUROSEMIDE [Concomitant]
     Dosage: 40 MG
     Dates: start: 19980101
  2. PRADAXA [Suspect]
     Indication: ATRIAL FIBRILLATION
  3. METOPROLOL [Concomitant]
     Dosage: 500 MG
     Dates: start: 19990101
  4. DIGOXIN [Concomitant]
     Dosage: 0.0625 MG
     Dates: start: 19980101
  5. PRADAXA [Suspect]
     Indication: CEREBROVASCULAR ACCIDENT PROPHYLAXIS
     Dates: start: 20110714

REACTIONS (1)
  - PNEUMONIA ASPIRATION [None]
